FAERS Safety Report 14838889 (Version 5)
Quarter: 2019Q4

REPORT INFORMATION
  Report Type: Report from Study
  Country: JP (occurrence: JP)
  Receive Date: 20180502
  Receipt Date: 20191121
  Transmission Date: 20200122
  Serious: Yes (Death, Life-Threatening, Other)
  Sender: FDA-Public Use
  Company Number: PHJP2016JP033698

PATIENT
  Age: 39 Year
  Sex: Male

DRUGS (3)
  1. ZYKADIA [Suspect]
     Active Substance: CERITINIB
     Indication: LUNG ADENOCARCINOMA
     Dosage: 750 MG, QD
     Route: 048
     Dates: start: 20161130, end: 20170125
  2. ZYKADIA [Suspect]
     Active Substance: CERITINIB
     Dosage: 750 MG, QD
     Route: 048
     Dates: start: 20170215, end: 20170605
  3. ZYKADIA [Suspect]
     Active Substance: CERITINIB
     Indication: NON-SMALL CELL LUNG CANCER STAGE IV
     Dosage: 750 MG, QD
     Route: 048
     Dates: start: 20160913, end: 20161115

REACTIONS (12)
  - Hypersensitivity vasculitis [Recovered/Resolved]
  - Renal disorder [Recovered/Resolved]
  - Proteinuria [Recovered/Resolved]
  - Malignant neoplasm progression [Fatal]
  - Pneumonia [Recovered/Resolved]
  - Rash [Recovered/Resolved]
  - Nasopharyngitis [Recovered/Resolved]
  - Bronchitis [Recovered/Resolved]
  - Nausea [Not Recovered/Not Resolved]
  - Therapeutic response decreased [Unknown]
  - Non-small cell lung cancer stage IV [Fatal]
  - Palpable purpura [Recovered/Resolved]

NARRATIVE: CASE EVENT DATE: 20160928
